FAERS Safety Report 6137000-X (Version None)
Quarter: 2009Q1

REPORT INFORMATION
  Report Type: 
  Country: None (occurrence: None)
  Receive Date: 20090330
  Receipt Date: 20090226
  Transmission Date: 20090719
  Serious: No
  Sender: FDA-Public Use
  Company Number: US-BAYER-200914629NA

PATIENT
  Age: 36 Year
  Sex: Female

DRUGS (2)
  1. AVELOX [Suspect]
     Indication: PNEUMONIA
     Dates: start: 20090225
  2. LINCOMYCIN HCL [Concomitant]
     Indication: PNEUMONIA
     Dosage: 20 OR 21-FEB-2009
     Dates: start: 20090201

REACTIONS (3)
  - DIZZINESS [None]
  - FEELING ABNORMAL [None]
  - POOR QUALITY SLEEP [None]
